FAERS Safety Report 6479528-9 (Version None)
Quarter: 2009Q4

REPORT INFORMATION
  Report Type: 
  Country: None (occurrence: None)
  Receive Date: 20091207
  Receipt Date: 20091207
  Transmission Date: 20100525
  Serious: Yes (Other)
  Sender: FDA-Public Use
  Company Number: None

PATIENT
  Sex: Female
  Weight: 62.5964 kg

DRUGS (10)
  1. METHOTREXATE [Suspect]
     Indication: RHEUMATOID ARTHRITIS
     Dosage: 2.5MG 3 TABLETS PER WEEK PO
     Route: 048
     Dates: start: 20091118, end: 20091119
  2. FOLIC ACID [Concomitant]
  3. MOBIC [Concomitant]
  4. ATENOLOL [Concomitant]
  5. ZEGERID [Concomitant]
  6. ALLEGRA [Concomitant]
  7. VITAMIN D [Concomitant]
  8. CALCIUM [Concomitant]
  9. VITAMIN B-12 [Concomitant]
  10. GARLIC [Concomitant]

REACTIONS (3)
  - BLISTER [None]
  - DRUG ERUPTION [None]
  - ECZEMA [None]
